FAERS Safety Report 5459950-X (Version None)
Quarter: 2007Q3

REPORT INFORMATION
  Report Type: 
  Country: None (occurrence: None)
  Receive Date: 20070919
  Receipt Date: 20070430
  Transmission Date: 20080115
  Serious: Yes (Hospitalization)
  Sender: FDA-Public Use
  Company Number: US-ASTRAZENECA-2007UW09218

PATIENT
  Age: 501 Month
  Sex: Female
  Weight: 91.8 kg

DRUGS (6)
  1. SEROQUEL [Suspect]
     Indication: SCHIZOPHRENIA
     Dosage: 100MG, 325MG
     Route: 048
     Dates: start: 19980101
  2. SEROQUEL [Suspect]
     Indication: NERVE INJURY
     Dosage: 100MG, 325MG
     Route: 048
     Dates: start: 19980101
  3. ZYPREXA [Suspect]
     Dosage: 10MG, 20MG
  4. CLOZARIL [Concomitant]
  5. HALDOL [Concomitant]
  6. STELAZINE [Concomitant]

REACTIONS (2)
  - CEREBROVASCULAR ACCIDENT [None]
  - DIABETES MELLITUS [None]
